FAERS Safety Report 13926241 (Version 1)
Quarter: 2017Q3

REPORT INFORMATION
  Report Type: Spontaneous
  Country: None (occurrence: US)
  Receive Date: 20170831
  Receipt Date: 20170831
  Transmission Date: 20171127
  Serious: No
  Sender: FDA-Public Use
  Company Number: US-CUMBERLAND PHARMACEUTICALS INC.-2025399

PATIENT
  Sex: Male

DRUGS (1)
  1. KRISTALOSE [Suspect]
     Active Substance: LACTULOSE
     Indication: CONSTIPATION
     Route: 048

REACTIONS (1)
  - Flat affect [Unknown]
